FAERS Safety Report 22161414 (Version 1)
Quarter: 2023Q1

REPORT INFORMATION
  Report Type: Spontaneous
  Country: US (occurrence: US)
  Receive Date: 20230331
  Receipt Date: 20230331
  Transmission Date: 20230417
  Serious: Yes (Hospitalization, Disabling, Other)
  Sender: FDA-Public Use
  Company Number: US-TARO PHARMACEUTICALS USA INC.-2023TAR00352

PATIENT
  Age: 23 Year
  Sex: Female

DRUGS (1)
  1. WARFARIN [Suspect]
     Active Substance: WARFARIN
     Indication: Pulmonary embolism
     Dosage: UNK
     Route: 065

REACTIONS (3)
  - Blindness [Not Recovered/Not Resolved]
  - Tinnitus [Unknown]
  - Cerebral venous sinus thrombosis [Unknown]
